FAERS Safety Report 7213866-7 (Version None)
Quarter: 2011Q1

REPORT INFORMATION
  Report Type: 
  Country: None (occurrence: None)
  Receive Date: 20110106
  Receipt Date: 20110103
  Transmission Date: 20110831
  Serious: Yes (Other)
  Sender: FDA-Public Use
  Company Number: US-AMGEN-USASP2011000142

PATIENT

DRUGS (3)
  1. ENBREL [Suspect]
     Dates: start: 20070703
  2. OPHTHALMOLOGICALS [Concomitant]
     Indication: GLAUCOMA
     Route: 047
  3. ENBREL [Suspect]
     Indication: ANKYLOSING SPONDYLITIS
     Dates: start: 20070703

REACTIONS (2)
  - INTRAOCULAR PRESSURE INCREASED [None]
  - UVEITIS [None]
